FAERS Safety Report 19064350 (Version 2)
Quarter: 2021Q2

REPORT INFORMATION
  Report Type: Spontaneous
  Country: JP (occurrence: JP)
  Receive Date: 20210326
  Receipt Date: 20210421
  Transmission Date: 20210717
  Serious: Yes (Hospitalization)
  Sender: FDA-Public Use
  Company Number: NVSJ2021JP004450

PATIENT
  Age: 32 Year
  Sex: Female

DRUGS (1)
  1. LETROZOLE. [Suspect]
     Active Substance: LETROZOLE
     Indication: OVULATION INDUCTION
     Dosage: UNK
     Route: 048

REACTIONS (6)
  - Vaginal discharge [Unknown]
  - Abdominal tenderness [Unknown]
  - Ectopic pregnancy [Recovered/Resolved]
  - Product use in unapproved indication [Unknown]
  - Abdominal rebound tenderness [Unknown]
  - Maternal exposure before pregnancy [Unknown]
